FAERS Safety Report 19349736 (Version 1)
Quarter: 2021Q2

REPORT INFORMATION
  Report Type: Spontaneous
  Country: US (occurrence: US)
  Receive Date: 20210601
  Receipt Date: 20210601
  Transmission Date: 20210717
  Serious: Yes (Disabling)
  Sender: FDA-Public Use
  Company Number: None

PATIENT
  Age: 69 Year
  Sex: Female

DRUGS (11)
  1. GLUCOSAMIN CONDROTIN [Concomitant]
  2. MULTIVITAMIN [Concomitant]
     Active Substance: VITAMINS
  3. VALTREX [Concomitant]
     Active Substance: VALACYCLOVIR HYDROCHLORIDE
  4. PROLIA [Suspect]
     Active Substance: DENOSUMAB
     Indication: BONE LOSS
     Dosage: ?          QUANTITY:6 INJECTED;OTHER FREQUENCY:I SHOT 6 MONTHS;?
     Route: 030
     Dates: start: 20150815, end: 20190115
  5. FISH OIL [Concomitant]
     Active Substance: FISH OIL
  6. BABY ASPIRIN [Concomitant]
     Active Substance: ASPIRIN
  7. PROLIA [Suspect]
     Active Substance: DENOSUMAB
     Indication: PROPHYLAXIS
     Dosage: ?          QUANTITY:6 INJECTED;OTHER FREQUENCY:I SHOT 6 MONTHS;?
     Route: 030
     Dates: start: 20150815, end: 20190115
  8. LEVROTHYROXINE [Concomitant]
  9. CURCUMIN [Concomitant]
     Active Substance: CURCUMIN
  10. SIMVISTATIN [Concomitant]
     Active Substance: SIMVASTATIN
  11. FOSAMAX [Concomitant]
     Active Substance: ALENDRONATE SODIUM

REACTIONS (3)
  - Gait disturbance [None]
  - Arthralgia [None]
  - Back pain [None]

NARRATIVE: CASE EVENT DATE: 20170115
